FAERS Safety Report 7877365-1 (Version None)
Quarter: 2011Q4

REPORT INFORMATION
  Report Type: 
  Country: None (occurrence: None)
  Receive Date: 20111031
  Receipt Date: 20111018
  Transmission Date: 20120403
  Serious: Yes (Hospitalization, Other)
  Sender: FDA-Public Use
  Company Number: CA-ELI_LILLY_AND_COMPANY-CA201110004458

PATIENT
  Sex: Male

DRUGS (3)
  1. ZYPREXA [Suspect]
     Indication: GENERALISED ANXIETY DISORDER
     Dosage: 5 MG, BID
     Dates: start: 20041026, end: 20041124
  2. EFFEXOR XR [Concomitant]
  3. CLONAZEPAM [Concomitant]

REACTIONS (20)
  - METABOLIC SYNDROME [None]
  - DIABETES MELLITUS [None]
  - RASH [None]
  - SLEEP APNOEA SYNDROME [None]
  - CONJUNCTIVITIS [None]
  - FUNGAL SKIN INFECTION [None]
  - HYPERGLYCAEMIA [None]
  - UPPER GASTROINTESTINAL HAEMORRHAGE [None]
  - HYPERTRIGLYCERIDAEMIA [None]
  - PANCREATITIS [None]
  - CELLULITIS [None]
  - VITREOUS FLOATERS [None]
  - ORAL CANDIDIASIS [None]
  - HYPOGLYCAEMIA [None]
  - URINARY TRACT INFECTION [None]
  - HYPERTENSION [None]
  - OEDEMA PERIPHERAL [None]
  - BLOOD CHOLESTEROL INCREASED [None]
  - WEIGHT INCREASED [None]
  - HYPERGLYCAEMIC HYPEROSMOLAR NONKETOTIC SYNDROME [None]
